FAERS Safety Report 21317388 (Version 2)
Quarter: 2022Q4

REPORT INFORMATION
  Report Type: Spontaneous
  Country: US (occurrence: US)
  Receive Date: 20220911
  Receipt Date: 20221013
  Transmission Date: 20230113
  Serious: No
  Sender: FDA-Public Use
  Company Number: US-SA-SAC20220824001159

PATIENT
  Sex: Female

DRUGS (20)
  1. DUPIXENT [Suspect]
     Active Substance: DUPILUMAB
     Indication: Asthma
     Dosage: 300 MG, QOW
     Route: 058
  2. TRAMADOL HCL [Concomitant]
     Active Substance: TRAMADOL HYDROCHLORIDE
  3. ALBUTEROL SULFATE [Concomitant]
     Active Substance: ALBUTEROL SULFATE
  4. ALLOPURINOL [Concomitant]
     Active Substance: ALLOPURINOL
  5. ALPRAZOLAM [Concomitant]
     Active Substance: ALPRAZOLAM
  6. ASPIRIN [Concomitant]
     Active Substance: ASPIRIN
     Dosage: UNK UNK, Q3W
  7. ATORVASTATIN [Concomitant]
     Active Substance: ATORVASTATIN
  8. BUMEX [Concomitant]
     Active Substance: BUMETANIDE
  9. ELIQUIS [Concomitant]
     Active Substance: APIXABAN
  10. ESOMEPRAZOLE [Concomitant]
     Active Substance: ESOMEPRAZOLE
  11. GABAPENTIN [Concomitant]
     Active Substance: GABAPENTIN
  12. HYDROCODONE [Concomitant]
     Active Substance: HYDROCODONE
  13. LISINOPRIL [Concomitant]
     Active Substance: LISINOPRIL
  14. MONTELUKAST [Concomitant]
     Active Substance: MONTELUKAST SODIUM
  15. RANOLAZINE [Concomitant]
     Active Substance: RANOLAZINE
  16. RESTASIS [Concomitant]
     Active Substance: CYCLOSPORINE
  17. SPIRIVA [Concomitant]
     Active Substance: TIOTROPIUM BROMIDE MONOHYDRATE
  18. SYNTHROID [Concomitant]
     Active Substance: LEVOTHYROXINE SODIUM
  19. VITAMIN D NOS [Concomitant]
     Active Substance: VITAMIN D NOS
  20. BUDESONIDE [Concomitant]
     Active Substance: BUDESONIDE

REACTIONS (4)
  - Asthma [Not Recovered/Not Resolved]
  - Cough [Unknown]
  - Productive cough [Not Recovered/Not Resolved]
  - Fungal infection [Unknown]
